FAERS Safety Report 14998458 (Version 1)
Quarter: 2018Q2

REPORT INFORMATION
  Report Type: Spontaneous
  Country: DE (occurrence: DE)
  Receive Date: 20180611
  Receipt Date: 20180611
  Transmission Date: 20180711
  Serious: Yes (Hospitalization)
  Sender: FDA-Public Use
  Company Number: DE-TEVA-2018-DE-904192

PATIENT
  Age: 47 Year
  Sex: Female
  Weight: 46 kg

DRUGS (10)
  1. NEXIUM [Concomitant]
     Active Substance: ESOMEPRAZOLE MAGNESIUM
     Dosage: 0-0-1-0
     Route: 048
  2. DECRISTOL [Concomitant]
     Dosage: 20000 IE / WEEK
     Route: 065
  3. CITALOPRAM [Suspect]
     Active Substance: CITALOPRAM HYDROBROMIDE
     Dosage: 1-0-0-0
     Route: 048
  4. FLUVASTATIN [Concomitant]
     Active Substance: FLUVASTATIN SODIUM
     Dosage: 0-0-1-0
     Route: 048
  5. LASIX [Concomitant]
     Active Substance: FUROSEMIDE
     Dosage: 1-0-0-0
     Route: 048
  6. HEPARIN [Concomitant]
     Active Substance: HEPARIN SODIUM
     Dosage: 1-0-1-0
     Route: 058
  7. CERTICAN [Concomitant]
     Active Substance: EVEROLIMUS
     Dosage: 1-0-1-0
     Route: 048
  8. ZYLORIC [Concomitant]
     Active Substance: ALLOPURINOL
     Dosage: 1-0-0-0
     Route: 048
  9. NOVORAPID [Concomitant]
     Active Substance: INSULIN ASPART
     Dosage: NK NEED
     Route: 058
  10. SANDIMMUN [Concomitant]
     Active Substance: CYCLOSPORINE
     Dosage: 1-0-1-0
     Route: 048

REACTIONS (3)
  - Accidental overdose [Unknown]
  - Disorientation [Unknown]
  - Medication error [Unknown]

NARRATIVE: CASE EVENT DATE: 20150921
